FAERS Safety Report 4446750-2 (Version None)
Quarter: 2004Q3

REPORT INFORMATION
  Report Type: 
  Country: None (occurrence: None)
  Receive Date: 20040910
  Receipt Date: 20040826
  Transmission Date: 20050211
  Serious: Yes (Death, Life-Threatening)
  Sender: FDA-Public Use
  Company Number: 2004060682

PATIENT
  Age: 19 Year
  Sex: Male

DRUGS (1)
  1. NIFEDIPINE [Suspect]
     Indication: ILL-DEFINED DISORDER
     Dosage: INTRAVENOUS
     Route: 042

REACTIONS (1)
  - OVERDOSE [None]
